FAERS Safety Report 7366096-2 (Version None)
Quarter: 2011Q1

REPORT INFORMATION
  Report Type: 
  Country: None (occurrence: None)
  Receive Date: 20110322
  Receipt Date: 20110315
  Transmission Date: 20110831
  Serious: Yes (Life-Threatening)
  Sender: FDA-Public Use
  Company Number: US-BRACCO-005959

PATIENT
  Sex: Male
  Weight: 155.9 kg

DRUGS (13)
  1. LEXAPRO [Concomitant]
     Route: 048
  2. DAPTOMYCIN [Concomitant]
     Dosage: TOT. VOL: 50 ML IN 0.9% NACL INFUSED AT A RATE OF 100 ML/HR OVER 30^
     Route: 041
     Dates: start: 20110223
  3. LIPITOR [Concomitant]
     Route: 048
  4. HEPARIN SODIUM [Concomitant]
     Dosage: 5000 UNITS=0.5ML SC INJECTION Q8HR
     Route: 058
     Dates: start: 20110220
  5. PERCOCET [Concomitant]
     Indication: PAIN
     Dosage: PRN ADMINISTERED AT 13:48
     Route: 048
     Dates: start: 20110225
  6. AMBIEN [Concomitant]
     Indication: INSOMNIA
     Dosage: PRN
     Route: 048
     Dates: start: 20110221
  7. FLOVENT [Concomitant]
     Indication: WHEEZING
     Dosage: PRN,
     Route: 055
  8. MULTIHANCE [Suspect]
     Indication: CELLULITIS
     Dosage: S0P054B (EXP: 31-JUL-2013), S0P265A (EXP: 30-SEP-2013), MULTIHANCE ADMINISTERED AT 19:15
     Route: 042
     Dates: start: 20110226, end: 20110226
  9. PROTONIX [Concomitant]
     Route: 048
     Dates: start: 20110220
  10. MULTIHANCE [Suspect]
     Indication: NUCLEAR MAGNETIC RESONANCE IMAGING
     Dosage: S0P054B (EXP: 31-JUL-2013), S0P265A (EXP: 30-SEP-2013), MULTIHANCE ADMINISTERED AT 19:15
     Route: 042
     Dates: start: 20110226, end: 20110226
  11. LISINOPRIL [Concomitant]
     Dosage: ON HOLD
     Route: 048
  12. ISOSORBIDE MONONITRATE [Concomitant]
     Route: 048
  13. ATENOLOL [Concomitant]
     Route: 048

REACTIONS (2)
  - ARTERIOSPASM CORONARY [None]
  - CARDIO-RESPIRATORY ARREST [None]
